FAERS Safety Report 10217313 (Version 1)
Quarter: 2014Q2

REPORT INFORMATION
  Report Type: Spontaneous
  Country: VE (occurrence: VE)
  Receive Date: 20140604
  Receipt Date: 20140604
  Transmission Date: 20141212
  Serious: Yes (Hospitalization)
  Sender: FDA-Public Use
  Company Number: PHHY2014VE067256

PATIENT
  Age: 52 Year
  Sex: Female

DRUGS (2)
  1. DIGOXIN [Suspect]
     Indication: ARTERIAL DISORDER
     Dosage: 0.25 MG, DAILY
     Route: 048
  2. DIGOXIN [Suspect]
     Indication: OFF LABEL USE

REACTIONS (3)
  - Dyspnoea [Not Recovered/Not Resolved]
  - Choking [Not Recovered/Not Resolved]
  - Fluid retention [Not Recovered/Not Resolved]
